FAERS Safety Report 9471015 (Version 1)
Quarter: 2013Q3

REPORT INFORMATION
  Report Type: Spontaneous
  Country: TR (occurrence: None)
  Receive Date: 20130816
  Receipt Date: 20130816
  Transmission Date: 20140515
  Serious: Yes (Other)
  Sender: FDA-Public Use
  Company Number: 2013P1017248

PATIENT
  Age: 28 Day
  Sex: Female
  Weight: .76 kg

DRUGS (1)
  1. HYDROCORTISONE [Suspect]
     Indication: RESPIRATORY DISTRESS
     Dosage: 1 MG/KG/DAY

REACTIONS (2)
  - Cardiac hypertrophy [None]
  - Hypertension [None]
